FAERS Safety Report 12768858 (Version 1)
Quarter: 2016Q3

REPORT INFORMATION
  Report Type: Spontaneous
  Country: US (occurrence: US)
  Receive Date: 20160921
  Receipt Date: 20160921
  Transmission Date: 20161109
  Serious: No
  Sender: FDA-Public Use
  Company Number: US-JAZZ-2016-US-010325

PATIENT
  Sex: Female

DRUGS (9)
  1. XYREM [Suspect]
     Active Substance: SODIUM OXYBATE
     Indication: NARCOLEPSY
     Dosage: 2.25 G, QD MOST OF THE NIGHTS AND BID ON SOME WEEKENDS
     Route: 048
     Dates: start: 201605, end: 201605
  2. MICARDIS [Concomitant]
     Active Substance: TELMISARTAN
  3. XYREM [Suspect]
     Active Substance: SODIUM OXYBATE
     Dosage: 3.75 G, QD MOST OF THE NIGHTS AND BID ON SOME WEEKENDS
     Route: 048
     Dates: start: 201605
  4. IBUPROFEN. [Concomitant]
     Active Substance: IBUPROFEN
  5. LORYNA [Concomitant]
     Active Substance: DROSPIRENONE\ETHINYL ESTRADIOL
  6. OSTEO BI-FLEX [Concomitant]
     Active Substance: CHONDROITIN SULFATE A\GLUCOSAMINE
  7. XYREM [Suspect]
     Active Substance: SODIUM OXYBATE
     Indication: CATAPLEXY
     Dosage: 3 G, QD MOST OF THE NIGHTS AND BID ON SOME WEEKENDS
     Route: 048
     Dates: start: 201605, end: 201605
  8. MIRALAX [Concomitant]
     Active Substance: POLYETHYLENE GLYCOL 3350
  9. OMEGA-3 EC [Concomitant]

REACTIONS (3)
  - Nausea [Unknown]
  - Diarrhoea [Unknown]
  - Dizziness [Unknown]

NARRATIVE: CASE EVENT DATE: 2016
